FAERS Safety Report 12309610 (Version 1)
Quarter: 2016Q2

REPORT INFORMATION
  Report Type: Spontaneous
  Country: US (occurrence: None)
  Receive Date: 20160426
  Receipt Date: 20160426
  Transmission Date: 20160815
  Serious: No
  Sender: FDA-Public Use
  Company Number: None

PATIENT
  Age: 77 Year
  Sex: Female

DRUGS (5)
  1. AMLODIPINE [Concomitant]
     Active Substance: AMLODIPINE BESYLATE
  2. LETROZOLE. [Concomitant]
     Active Substance: LETROZOLE
  3. IBRANCE [Suspect]
     Active Substance: PALBOCICLIB
     Indication: NEOPLASM MALIGNANT
     Route: 048
     Dates: start: 201506
  4. BISOPROL FUM [Concomitant]
     Active Substance: BISOPROLOL FUMARATE
  5. HYDROCHLOR ONEMPRAZOLE [Concomitant]

REACTIONS (3)
  - Nerve injury [None]
  - Bone pain [None]
  - Tenderness [None]

NARRATIVE: CASE EVENT DATE: 201604
